FAERS Safety Report 14679998 (Version 2)
Quarter: 2018Q2

REPORT INFORMATION
  Report Type: Spontaneous
  Country: GB (occurrence: GB)
  Receive Date: 20180326
  Receipt Date: 20180614
  Transmission Date: 20180711
  Serious: Yes (Congenital Anomaly)
  Sender: FDA-Public Use
  Company Number: GB-TEVA-2018-GB-874256

PATIENT

DRUGS (2)
  1. ARIPIPRAZOLE. [Suspect]
     Active Substance: ARIPIPRAZOLE
     Dosage: 10 MILLIGRAM DAILY;
     Route: 064
  2. MESALAZINE [Suspect]
     Active Substance: MESALAMINE
     Route: 064

REACTIONS (2)
  - Ectrodactyly [Not Recovered/Not Resolved]
  - Foetal exposure during pregnancy [Unknown]
